FAERS Safety Report 5300582-1 (Version None)
Quarter: 2007Q2

REPORT INFORMATION
  Report Type: 
  Country: None (occurrence: None)
  Receive Date: 20070418
  Receipt Date: 20070411
  Transmission Date: 20071010
  Serious: Yes (Other)
  Sender: FDA-Public Use
  Company Number: GB-GLAXOSMITHKLINE-B0361357A

PATIENT
  Sex: Male

DRUGS (1)
  1. SEROXAT [Suspect]
     Route: 065
     Dates: start: 19980201

REACTIONS (9)
  - DIARRHOEA [None]
  - DISTURBANCE IN ATTENTION [None]
  - DIZZINESS [None]
  - DRUG WITHDRAWAL SYNDROME [None]
  - MALAISE [None]
  - NAUSEA [None]
  - PARAESTHESIA [None]
  - SYNCOPE [None]
  - THINKING ABNORMAL [None]
